FAERS Safety Report 8606739 (Version 2)
Quarter: 2013Q3

REPORT INFORMATION
  Report Type: Spontaneous
  Country: US (occurrence: US)
  Receive Date: 20120611
  Receipt Date: 20130807
  Transmission Date: 20140515
  Serious: Yes (Disabling, Other)
  Sender: FDA-Public Use
  Company Number: US-ASTRAZENECA-2012SE35019

PATIENT
  Age: 546 Month
  Sex: Female

DRUGS (5)
  1. NEXIUM [Suspect]
     Indication: ABDOMINAL PAIN UPPER
     Dosage: DAILY
     Route: 048
  2. NEXIUM [Suspect]
     Indication: DYSPEPSIA
     Dosage: DAILY
     Route: 048
  3. NEXIUM [Suspect]
     Indication: ABDOMINAL DISCOMFORT
     Dosage: DAILY
     Route: 048
  4. ESTRODIL [Concomitant]
  5. PREMARIN [Concomitant]

REACTIONS (14)
  - Cervical vertebral fracture [Unknown]
  - Neoplasm malignant [Unknown]
  - Renal failure [Unknown]
  - Osteoporosis [Unknown]
  - Intervertebral disc protrusion [Unknown]
  - Multiple fractures [Unknown]
  - Lower limb fracture [Unknown]
  - Back disorder [Unknown]
  - Fall [Unknown]
  - Cataract [Unknown]
  - Arthritis [Unknown]
  - Intervertebral disc degeneration [Unknown]
  - Joint injury [Unknown]
  - Depression [Unknown]
